FAERS Safety Report 19716463 (Version 7)
Quarter: 2025Q3

REPORT INFORMATION
  Report Type: Spontaneous
  Country: CA (occurrence: CA)
  Receive Date: 20210818
  Receipt Date: 20250704
  Transmission Date: 20251020
  Serious: Yes (Hospitalization, Other)
  Sender: ORGANON
  Company Number: CA-009507513-1801CAN014527

PATIENT
  Age: 48 Year
  Sex: Female
  Weight: 106 kg

DRUGS (441)
  1. DIPROSONE [Suspect]
     Active Substance: BETAMETHASONE DIPROPIONATE
     Indication: Tardive dyskinesia
     Dosage: 2 EVERY 1 DAYS, (BID)
     Route: 048
     Dates: start: 20170209
  2. DIPROSONE [Suspect]
     Active Substance: BETAMETHASONE DIPROPIONATE
     Indication: Product used for unknown indication
     Dosage: 2 EVERY 1 DAYS, (BID)
     Route: 065
  3. DIPROSONE [Suspect]
     Active Substance: BETAMETHASONE DIPROPIONATE
     Dosage: UNK, EVERY 12 HOURS (1 EVERY 12 HOURS)
     Route: 048
  4. DIPROSONE [Suspect]
     Active Substance: BETAMETHASONE DIPROPIONATE
     Dosage: 2 EVERY 1 DAYS, (BID)
     Route: 065
  5. DIPROSONE [Suspect]
     Active Substance: BETAMETHASONE DIPROPIONATE
     Route: 048
  6. DIPROSONE [Suspect]
     Active Substance: BETAMETHASONE DIPROPIONATE
     Dosage: 2 EVERY 1 DAYS, (BID)
     Route: 065
  7. DIPROSONE [Suspect]
     Active Substance: BETAMETHASONE DIPROPIONATE
     Route: 048
  8. DIPROSONE [Suspect]
     Active Substance: BETAMETHASONE DIPROPIONATE
     Dosage: 2 EVERY 1 DAYS, (BID)
     Route: 065
  9. DIPROSONE [Suspect]
     Active Substance: BETAMETHASONE DIPROPIONATE
     Route: 048
  10. DIPROSONE [Suspect]
     Active Substance: BETAMETHASONE DIPROPIONATE
     Dosage: UNK, 2X/DAY
     Route: 065
  11. DIPROSONE [Suspect]
     Active Substance: BETAMETHASONE DIPROPIONATE
     Route: 048
  12. DIPROSONE [Suspect]
     Active Substance: BETAMETHASONE DIPROPIONATE
     Dosage: 2 DOSAGE FORM, QD
     Route: 048
  13. DIPROSONE [Suspect]
     Active Substance: BETAMETHASONE DIPROPIONATE
     Route: 065
  14. DIPROSONE [Suspect]
     Active Substance: BETAMETHASONE DIPROPIONATE
     Dosage: 2 DOSAGE FORM, QD
     Route: 065
  15. DIPROSONE [Suspect]
     Active Substance: BETAMETHASONE DIPROPIONATE
     Route: 048
  16. EMEND [Suspect]
     Active Substance: APREPITANT
     Indication: Supportive care
     Dosage: 80.0 MILLIGRAM; 1 EVERY 1 DAY(S) (QD)/ 80MG, 1X/DAYDAILY DOSE : 80 MILLIGRAM REGIMEN DOSE : 160 MILL
     Route: 048
     Dates: start: 20170331, end: 20170401
  17. EMEND [Suspect]
     Active Substance: APREPITANT
     Indication: Product used for unknown indication
     Dosage: 125.0 MILLIGRAM; 1 EVERY 1 DAY(S) (QD)
     Route: 048
  18. EMEND [Suspect]
     Active Substance: APREPITANT
     Dosage: UNK, EVERY DAY
     Route: 048
  19. EMEND [Suspect]
     Active Substance: APREPITANT
     Dosage: UNK, EVERY DAY
     Route: 048
  20. EMEND [Suspect]
     Active Substance: APREPITANT
     Dosage: UNK, EVERY DAY
     Route: 048
  21. EMEND [Suspect]
     Active Substance: APREPITANT
     Dosage: UNK, EVERY DAY
     Route: 048
  22. EMEND [Suspect]
     Active Substance: APREPITANT
     Dosage: 125 MILLIGRAM, 1 EVERY 1 DAYS
     Route: 048
  23. EMEND [Suspect]
     Active Substance: APREPITANT
     Dosage: 125 MILLIGRAM, 1 EVERY 1 DAYS
     Route: 048
  24. EMEND [Suspect]
     Active Substance: APREPITANT
     Dosage: 125 MILLIGRAM, 1 EVERY 1 DAYS
     Route: 048
  25. EMEND [Suspect]
     Active Substance: APREPITANT
     Dosage: 125 MILLIGRAM, 1 EVERY 1 DAYS
     Route: 048
  26. EMEND [Suspect]
     Active Substance: APREPITANT
     Dosage: 50.0 MILLIGRAM, QD (1 EVERY 1 DAY)
     Route: 065
  27. EMEND [Suspect]
     Active Substance: APREPITANT
     Dosage: UNK, EVERY DAY
     Route: 048
  28. EMEND [Suspect]
     Active Substance: APREPITANT
     Dosage: 80 MILLIGRAM, 1 EVERY 1 DAYS (QD)/ 80MG, UNK
     Route: 048
  29. EMEND [Suspect]
     Active Substance: APREPITANT
     Dosage: 80 MILLIGRAM, 1 EVERY 1 DAYS (QD)/ 80MG, UNK
     Route: 048
  30. EMEND [Suspect]
     Active Substance: APREPITANT
     Dosage: 80 MILLIGRAM, 1 EVERY 1 DAYS (QD)/ 80MG, UNK
     Route: 048
  31. EMEND [Suspect]
     Active Substance: APREPITANT
     Dosage: 80 MILLIGRAM, 1 EVERY 1 DAYS (QD)/ 80 MG UNK
     Route: 048
  32. EMEND [Suspect]
     Active Substance: APREPITANT
     Dosage: 80 MILLIGRAM, 1 EVERY 1 DAYS (QD)/ 80MG, UNK
     Route: 048
  33. EMEND [Suspect]
     Active Substance: APREPITANT
     Dosage: 80 MILLIGRAM, 1 EVERY 1 DAYS (QD)/ 80MG, UNK
     Route: 048
  34. EMEND [Suspect]
     Active Substance: APREPITANT
     Dosage: 80 MILLIGRAM, 1 EVERY 1 DAYS (QD)/ 80MG, UNK
     Route: 048
  35. EMEND [Suspect]
     Active Substance: APREPITANT
     Dosage: 80 MILLIGRAM, 1 EVERY 1 DAYS (QD)/ 80MG, UNK
     Route: 048
  36. EMEND [Suspect]
     Active Substance: APREPITANT
     Route: 048
  37. EMEND [Suspect]
     Active Substance: APREPITANT
     Route: 048
  38. EMEND [Suspect]
     Active Substance: APREPITANT
     Route: 048
  39. EMEND [Suspect]
     Active Substance: APREPITANT
     Route: 048
  40. EMEND [Suspect]
     Active Substance: APREPITANT
     Route: 048
  41. EMEND [Suspect]
     Active Substance: APREPITANT
     Dosage: 80 MILLIGRAM, 1 EVERY 1 DAYS (QD)/ 80MG, UNK
     Route: 048
  42. EMEND [Suspect]
     Active Substance: APREPITANT
     Dosage: 125 MILLIGRAM, 1 EVERY 1 DAYS
     Route: 048
  43. EMEND [Suspect]
     Active Substance: APREPITANT
     Dosage: 125 MILLIGRAM, 1 EVERY 1 DAYS
     Route: 048
  44. EMEND [Suspect]
     Active Substance: APREPITANT
     Dosage: 125 MILLIGRAM, 1 EVERY 1 DAYS
     Route: 048
  45. EMEND [Suspect]
     Active Substance: APREPITANT
     Dosage: 80 MILLIGRAM, 1 EVERY 1 DAYS (QD)
     Route: 048
  46. EMEND [Suspect]
     Active Substance: APREPITANT
     Route: 048
  47. EMEND [Suspect]
     Active Substance: APREPITANT
     Route: 048
  48. EMEND [Suspect]
     Active Substance: APREPITANT
     Route: 048
  49. EMEND [Suspect]
     Active Substance: APREPITANT
     Route: 048
  50. EMEND [Suspect]
     Active Substance: APREPITANT
     Dosage: 125 MILLIGRAM, 1 EVERY 1 DAYS
     Route: 048
  51. EMEND [Suspect]
     Active Substance: APREPITANT
     Route: 048
  52. EMEND [Suspect]
     Active Substance: APREPITANT
     Route: 048
  53. EMEND [Suspect]
     Active Substance: APREPITANT
     Route: 048
  54. EMEND [Suspect]
     Active Substance: APREPITANT
     Route: 048
  55. EMEND [Suspect]
     Active Substance: APREPITANT
     Route: 048
  56. FOSAPREPITANT DIMEGLUMINE [Suspect]
     Active Substance: FOSAPREPITANT DIMEGLUMINE
     Indication: Supportive care
     Dosage: UNK; DOSAGE FORM: POWDER FOR SOLUTION FOR INJECTION; 80.0 MILLIGRAM, 1 EVERY 1 DAY(S) (QD)
     Route: 048
  57. FOSAPREPITANT DIMEGLUMINE [Suspect]
     Active Substance: FOSAPREPITANT DIMEGLUMINE
     Dosage: UNK; DOSAGE FORM: POWDER FOR SOLUTION FOR INJECTION; 125 MILLIGRAM, QD
     Route: 048
  58. DECADRON [Suspect]
     Active Substance: DEXAMETHASONE
     Indication: Supportive care
     Dosage: 20.0 MILLIGRAM; 1 EVERY 1 DAY(S) (QD) DOSAGE FORM: NOT SPECIFIED/ 20MG 1X/DAY
     Route: 048
     Dates: start: 20170329, end: 20170330
  59. DECADRON [Suspect]
     Active Substance: DEXAMETHASONE
     Route: 048
  60. DECADRON [Suspect]
     Active Substance: DEXAMETHASONE
     Route: 048
  61. DECADRON [Suspect]
     Active Substance: DEXAMETHASONE
     Route: 048
  62. DECADRON [Suspect]
     Active Substance: DEXAMETHASONE
     Route: 048
  63. DECADRON [Suspect]
     Active Substance: DEXAMETHASONE
     Route: 065
  64. DECADRON [Suspect]
     Active Substance: DEXAMETHASONE
     Route: 065
  65. DECADRON [Suspect]
     Active Substance: DEXAMETHASONE
     Dosage: 20 MILLIGRAM, 1 EVERY 1 DAYS
     Route: 048
  66. DECADRON [Suspect]
     Active Substance: DEXAMETHASONE
     Dosage: 20 MILLIGRAM, 1 EVERY 1 DAYS
     Route: 048
  67. DECADRON [Suspect]
     Active Substance: DEXAMETHASONE
     Dosage: 20 MILLIGRAM, 1 EVERY 1 DAYS; DOSAGE FORM: NOT SPECIFIED
     Route: 048
  68. DECADRON [Suspect]
     Active Substance: DEXAMETHASONE
     Dosage: 20 MILLIGRAM, 1 EVERY 1 DAYS, DOSAGE FORM NOT SPECIFIED
     Route: 048
  69. DECADRON [Suspect]
     Active Substance: DEXAMETHASONE
     Dosage: 20 MILLIGRAM, 1 EVERY 1 DAYS (DOSAGE FORM: NOT SPECIFIED/ 20MG 1X/DAY)
     Route: 048
     Dates: start: 20170329, end: 20170330
  70. DOXORUBICIN HYDROCHLORIDE [Suspect]
     Active Substance: DOXORUBICIN HYDROCHLORIDE
     Indication: Breast cancer
     Dosage: DOSAGE FORM: SOLUTION INTRAVENOUS/INJETION; 136.0 MILLIGRAM, 1 EVERY 14 DAY(S) / 1 EVERY 2 WEEK(S)/
     Route: 042
     Dates: start: 20161215, end: 20170126
  71. DOXORUBICIN HYDROCHLORIDE [Suspect]
     Active Substance: DOXORUBICIN HYDROCHLORIDE
     Indication: Breast cancer female
     Dosage: 136 MILLIGRAM, 1 EVERY 4 HOURS (Q4H)
     Route: 042
  72. DOXORUBICIN HYDROCHLORIDE [Suspect]
     Active Substance: DOXORUBICIN HYDROCHLORIDE
     Dosage: 136 MILLIGRAM, 1 EVERY 2 WEEKS,DOSAGE FORM NOT SPECIFIED
     Route: 042
  73. DOXORUBICIN HYDROCHLORIDE [Suspect]
     Active Substance: DOXORUBICIN HYDROCHLORIDE
     Dosage: 136 MILLIGRAM, 1 EVERY 4 DAYS (Q4D)
     Route: 042
  74. DOXORUBICIN HYDROCHLORIDE [Suspect]
     Active Substance: DOXORUBICIN HYDROCHLORIDE
     Route: 042
  75. DOXORUBICIN HYDROCHLORIDE [Suspect]
     Active Substance: DOXORUBICIN HYDROCHLORIDE
     Route: 042
  76. DOXORUBICIN HYDROCHLORIDE [Suspect]
     Active Substance: DOXORUBICIN HYDROCHLORIDE
     Route: 042
  77. DOXORUBICIN HYDROCHLORIDE [Suspect]
     Active Substance: DOXORUBICIN HYDROCHLORIDE
     Dosage: 136 MILLIGRAM, 1 EVERY 2 WEEKS; ROUTE: INTRAVENOUS NOT OTHERWISE SPECIFIED
     Route: 042
  78. DOXORUBICIN HYDROCHLORIDE [Suspect]
     Active Substance: DOXORUBICIN HYDROCHLORIDE
     Dosage: 136 MILLIGRAM, 1 EVERY 2 WEEK, ROUTE: INTRAVENOUS NOT OTHERWISE SPECIFIED
     Route: 042
  79. DOXORUBICIN HYDROCHLORIDE [Suspect]
     Active Substance: DOXORUBICIN HYDROCHLORIDE
     Indication: Breast cancer female
     Dosage: 136 MILLIGRAM, 1 EVERY 2 WEEKS(QOW), INTRAVENOUS (NOT OTHERWISE SPECIFIED)
     Route: 042
  80. DOXORUBICIN HYDROCHLORIDE [Suspect]
     Active Substance: DOXORUBICIN HYDROCHLORIDE
     Route: 042
  81. DOXORUBICIN HYDROCHLORIDE [Suspect]
     Active Substance: DOXORUBICIN HYDROCHLORIDE
     Route: 042
  82. DOXORUBICIN HYDROCHLORIDE [Suspect]
     Active Substance: DOXORUBICIN HYDROCHLORIDE
     Route: 042
  83. DOXORUBICIN HYDROCHLORIDE [Suspect]
     Active Substance: DOXORUBICIN HYDROCHLORIDE
     Route: 042
  84. DOXORUBICIN HYDROCHLORIDE [Suspect]
     Active Substance: DOXORUBICIN HYDROCHLORIDE
     Indication: Breast cancer female
     Route: 042
  85. DOXORUBICIN HYDROCHLORIDE [Suspect]
     Active Substance: DOXORUBICIN HYDROCHLORIDE
     Route: 042
  86. ENOXAPARIN SODIUM [Suspect]
     Active Substance: ENOXAPARIN SODIUM
     Indication: Tardive dyskinesia
     Dosage: 150.0 MILLIGRAM; 1 EVERY 1 DAY(S) (QD)/ 150MG 1X/DAY
     Route: 058
     Dates: start: 20161222
  87. ENOXAPARIN SODIUM [Suspect]
     Active Substance: ENOXAPARIN SODIUM
     Route: 058
  88. ENOXAPARIN SODIUM [Suspect]
     Active Substance: ENOXAPARIN SODIUM
     Dosage: 150.0 MILLIGRAM; 1 EVERY 1 DAY(S) (QD)/ 150MG 1X/DAY
     Route: 058
     Dates: start: 20161222
  89. ENOXAPARIN SODIUM [Suspect]
     Active Substance: ENOXAPARIN SODIUM
     Dosage: 150.0 MILLIGRAM; 1 EVERY 1 DAY(S) (QD)
     Route: 058
     Dates: start: 20161222
  90. ENOXAPARIN SODIUM [Suspect]
     Active Substance: ENOXAPARIN SODIUM
     Dosage: UNK, 1 EVERY 1 DAYS (QD)
     Route: 058
  91. ENOXAPARIN SODIUM [Suspect]
     Active Substance: ENOXAPARIN SODIUM
     Dosage: UNK, 1 EVERY 1 DAYS (QD)
     Route: 058
  92. ENOXAPARIN SODIUM [Suspect]
     Active Substance: ENOXAPARIN SODIUM
     Dosage: UNK, 1 EVERY 1 DAYS (QD)
     Route: 058
  93. ENOXAPARIN SODIUM [Suspect]
     Active Substance: ENOXAPARIN SODIUM
     Dosage: UNK, 1 EVERY 1 DAYS (QD)
     Route: 058
  94. ENOXAPARIN SODIUM [Suspect]
     Active Substance: ENOXAPARIN SODIUM
     Dosage: UNK
     Route: 058
  95. LEVOFLOXACIN HEMIHYDRATE [Suspect]
     Active Substance: LEVOFLOXACIN
     Indication: Tardive dyskinesia
     Dosage: 500.0 MILLIGRAM; 1 EVERY 1 DAY(S) (QD), DOSAGE FORM NOT SPECIFIED
     Route: 048
     Dates: start: 20170209
  96. LEVOFLOXACIN HEMIHYDRATE [Suspect]
     Active Substance: LEVOFLOXACIN
     Route: 048
  97. LEVOFLOXACIN HEMIHYDRATE [Suspect]
     Active Substance: LEVOFLOXACIN
     Dosage: UNK, DOSAGE FORM NOT SPECIFIED; 1 EVERY 1 DAYS
     Route: 048
  98. LEVOFLOXACIN HEMIHYDRATE [Suspect]
     Active Substance: LEVOFLOXACIN
     Dosage: UNK, DOSAGE FORM NOT SPECIFIED; 1 EVERY 1 DAYS
     Route: 048
  99. LEVOFLOXACIN HEMIHYDRATE [Suspect]
     Active Substance: LEVOFLOXACIN
     Dosage: UNK, DOSAGE FORM NOT SPECIFIED; 1 EVERY 1 DAYS
     Route: 048
  100. LEVOFLOXACIN HEMIHYDRATE [Suspect]
     Active Substance: LEVOFLOXACIN
     Dosage: UNK, DOSAGE FORM NOT SPECIFIED; 1 EVERY 1 DAYS
     Route: 048
  101. LEVOFLOXACIN HEMIHYDRATE [Suspect]
     Active Substance: LEVOFLOXACIN
     Dosage: 500.0 MG, 1X/DAY
     Route: 048
  102. LEVOFLOXACIN HEMIHYDRATE [Suspect]
     Active Substance: LEVOFLOXACIN
     Dosage: 500 MILLIGRAM, 1 EVERY 1 DAY (DOSAGE FORM:NOT SPECIFIED)
     Route: 048
  103. LEVOFLOXACIN HEMIHYDRATE [Suspect]
     Active Substance: LEVOFLOXACIN
     Dosage: 500 MILLIGRAM, 1 EVERY 1 DAY (QD), DOSAGE FORM:NOT SPECIFIED
     Route: 048
  104. LEVOFLOXACIN HEMIHYDRATE [Suspect]
     Active Substance: LEVOFLOXACIN
     Route: 048
  105. LEVOFLOXACIN HEMIHYDRATE [Suspect]
     Active Substance: LEVOFLOXACIN
     Route: 048
  106. LORAZEPAM [Suspect]
     Active Substance: LORAZEPAM
     Indication: Tardive dyskinesia
     Dosage: UNK, DOSAGE FORM NOT SPECIFIED; 2 EVERY 1 DAY
     Route: 048
  107. LORAZEPAM [Suspect]
     Active Substance: LORAZEPAM
     Dosage: UNK, DOSAGE FORM NOT SPECIFIED; 2 EVERY 1 DAY
     Route: 048
  108. LORAZEPAM [Suspect]
     Active Substance: LORAZEPAM
     Dosage: UNK, DOSAGE FORM NOT SPECIFIED; 2 EVERY 1 DAY
     Route: 048
  109. LORAZEPAM [Suspect]
     Active Substance: LORAZEPAM
     Dosage: UNK, DOSAGE FORM NOT SPECIFIED; 2 EVERY 1 DAY
     Route: 048
  110. LORAZEPAM [Suspect]
     Active Substance: LORAZEPAM
     Dosage: DOSAGE FORM NOT SPECIFIED; 1 EVERY 12 HOURS
     Route: 048
  111. LORAZEPAM [Suspect]
     Active Substance: LORAZEPAM
     Dosage: 0.5 MILLIGRAM, 2 EVERY 1 DAYS / 0.5 MG 2X/DAY
     Route: 048
     Dates: start: 20170123
  112. LORAZEPAM [Suspect]
     Active Substance: LORAZEPAM
     Dosage: 0.5 MILLIGRAM, 2 EVERY 1 DAYS/ 0.5 MG 2X/DAY (DOSAGE FORM:NOT SPECIFIED)
     Route: 048
     Dates: start: 20170123
  113. LORAZEPAM [Suspect]
     Active Substance: LORAZEPAM
     Dosage: 0.5 MILLIGRAM, 2 EVERY 1 DAYS
     Route: 048
  114. LORAZEPAM [Suspect]
     Active Substance: LORAZEPAM
     Dosage: 0.5 MILLIGRAM, 1EVERY 12 HOURS
     Route: 048
     Dates: start: 20170123
  115. LORAZEPAM [Suspect]
     Active Substance: LORAZEPAM
     Route: 048
  116. LORAZEPAM [Suspect]
     Active Substance: LORAZEPAM
     Dosage: 0.5 MILLIGRAM, 1 EVERY 1 DAYS
     Route: 048
     Dates: start: 20170123
  117. LORAZEPAM [Suspect]
     Active Substance: LORAZEPAM
     Route: 048
  118. LORAZEPAM [Suspect]
     Active Substance: LORAZEPAM
     Indication: Tardive dyskinesia
     Route: 048
  119. LORAZEPAM [Suspect]
     Active Substance: LORAZEPAM
     Route: 048
  120. LORAZEPAM [Suspect]
     Active Substance: LORAZEPAM
     Route: 048
  121. LORAZEPAM [Suspect]
     Active Substance: LORAZEPAM
     Dosage: 1 MILLIGRAM, QD (1 EVERY 1 DAYS)
     Route: 048
  122. LORAZEPAM [Suspect]
     Active Substance: LORAZEPAM
     Route: 048
  123. LORAZEPAM [Suspect]
     Active Substance: LORAZEPAM
     Route: 048
  124. METOCLOPRAMIDE [Suspect]
     Active Substance: METOCLOPRAMIDE
     Indication: Tardive dyskinesia
     Dosage: 4 EVERY 1 DAY (QID)
     Route: 048
  125. METOCLOPRAMIDE [Suspect]
     Active Substance: METOCLOPRAMIDE
     Indication: Product used for unknown indication
     Dosage: 4 EVERY 1 DAY (QID)
     Route: 048
  126. METOCLOPRAMIDE [Suspect]
     Active Substance: METOCLOPRAMIDE
     Dosage: 1 EVERY 6 HOURS
     Route: 048
  127. METOCLOPRAMIDE [Suspect]
     Active Substance: METOCLOPRAMIDE
     Dosage: 4 EVERY 1 DAY (QID)
     Route: 048
  128. METOCLOPRAMIDE [Suspect]
     Active Substance: METOCLOPRAMIDE
     Dosage: 4 EVERY 1 DAY (QID)
     Route: 048
  129. METOCLOPRAMIDE [Suspect]
     Active Substance: METOCLOPRAMIDE
     Dosage: 4 EVERY 1 DAY (QID)
     Route: 048
  130. METOCLOPRAMIDE [Suspect]
     Active Substance: METOCLOPRAMIDE
     Dosage: 10 MILLIGRAM, 4 EVERY 1 DAYS; 10 MG 4X/DAY (1 EVERY 6 HOURS)
     Route: 048
     Dates: start: 20161208
  131. METOCLOPRAMIDE [Suspect]
     Active Substance: METOCLOPRAMIDE
     Dosage: 10 MILLIGRAM, 4 EVERY 1 DAY (QID)
     Route: 048
  132. METOCLOPRAMIDE [Suspect]
     Active Substance: METOCLOPRAMIDE
     Dosage: 10 MILLIGRAM, 4 EVERY 1 DAY (QID)
     Route: 048
  133. METOCLOPRAMIDE [Suspect]
     Active Substance: METOCLOPRAMIDE
     Dosage: 10 MILLIGRAM, 1 EVERY 6 HOURS
     Route: 048
  134. METOCLOPRAMIDE [Suspect]
     Active Substance: METOCLOPRAMIDE
     Dosage: 10 MILLIGRAM, 1 EVERY 1 DAYS
     Route: 048
  135. METOCLOPRAMIDE [Suspect]
     Active Substance: METOCLOPRAMIDE
     Dosage: 10 MILLIGRAM, 4 EVERY 1 DAY (QID),DOSAE FORM NOT SPECIFIED
     Route: 048
  136. METOCLOPRAMIDE [Suspect]
     Active Substance: METOCLOPRAMIDE
     Route: 048
  137. METOCLOPRAMIDE [Suspect]
     Active Substance: METOCLOPRAMIDE
     Dosage: 40 MILLIGRAM, QD (1 EVERY 1 DAYS)
     Route: 048
  138. METOCLOPRAMIDE [Suspect]
     Active Substance: METOCLOPRAMIDE
     Route: 048
  139. METOCLOPRAMIDE [Suspect]
     Active Substance: METOCLOPRAMIDE
     Route: 048
  140. METOCLOPRAMIDE [Suspect]
     Active Substance: METOCLOPRAMIDE
     Route: 048
  141. PACLITAXEL [Suspect]
     Active Substance: PACLITAXEL
     Indication: Breast cancer
     Route: 042
     Dates: start: 20170330, end: 20170330
  142. PACLITAXEL [Suspect]
     Active Substance: PACLITAXEL
     Indication: Supportive care
     Route: 042
  143. PACLITAXEL [Suspect]
     Active Substance: PACLITAXEL
     Indication: Product used for unknown indication
     Route: 042
  144. PACLITAXEL [Suspect]
     Active Substance: PACLITAXEL
     Indication: Breast cancer female
     Route: 065
  145. PACLITAXEL [Suspect]
     Active Substance: PACLITAXEL
     Route: 042
  146. PACLITAXEL [Suspect]
     Active Substance: PACLITAXEL
     Route: 042
  147. PACLITAXEL [Suspect]
     Active Substance: PACLITAXEL
     Route: 042
  148. PACLITAXEL [Suspect]
     Active Substance: PACLITAXEL
     Route: 065
  149. PACLITAXEL [Suspect]
     Active Substance: PACLITAXEL
     Route: 042
  150. PACLITAXEL [Suspect]
     Active Substance: PACLITAXEL
     Route: 065
  151. PACLITAXEL [Suspect]
     Active Substance: PACLITAXEL
     Route: 042
  152. PACLITAXEL [Suspect]
     Active Substance: PACLITAXEL
     Route: 065
  153. PACLITAXEL [Suspect]
     Active Substance: PACLITAXEL
     Route: 042
  154. PACLITAXEL [Suspect]
     Active Substance: PACLITAXEL
     Route: 042
  155. PACLITAXEL [Suspect]
     Active Substance: PACLITAXEL
     Route: 065
  156. PACLITAXEL [Suspect]
     Active Substance: PACLITAXEL
     Route: 042
  157. PACLITAXEL [Suspect]
     Active Substance: PACLITAXEL
     Route: 042
  158. PACLITAXEL [Suspect]
     Active Substance: PACLITAXEL
     Route: 042
  159. PACLITAXEL [Suspect]
     Active Substance: PACLITAXEL
     Route: 042
  160. PACLITAXEL [Suspect]
     Active Substance: PACLITAXEL
     Route: 042
  161. PACLITAXEL [Suspect]
     Active Substance: PACLITAXEL
     Dosage: 393 MILLIGRAM, 1 EVERY 1 DAYS (DOSAGE FORM:SOLUTION FOR INJECTION/INFUSION)
     Route: 042
  162. PACLITAXEL [Suspect]
     Active Substance: PACLITAXEL
     Route: 042
  163. PACLITAXEL [Suspect]
     Active Substance: PACLITAXEL
     Route: 042
  164. PACLITAXEL [Suspect]
     Active Substance: PACLITAXEL
     Dosage: 243 MILLIGRAM 1 EVERY 1 DAYS (DOSAGE FORM:SOLUTION FOR INJECTION/INFUSION)
     Route: 042
  165. PACLITAXEL [Suspect]
     Active Substance: PACLITAXEL
     Route: 042
  166. PACLITAXEL [Suspect]
     Active Substance: PACLITAXEL
     Route: 065
  167. PACLITAXEL [Suspect]
     Active Substance: PACLITAXEL
     Dosage: 393 MILLIGRAM, 1 EVERY 1 DAYS (DOSAGE FORM:SOLUTION FOR INJECTION/INFUSION), INTAVENOUS(NOT OTHERWIS
     Route: 042
  168. PACLITAXEL [Suspect]
     Active Substance: PACLITAXEL
     Route: 042
  169. PACLITAXEL [Suspect]
     Active Substance: PACLITAXEL
     Route: 042
  170. PACLITAXEL [Suspect]
     Active Substance: PACLITAXEL
     Route: 042
  171. PACLITAXEL [Suspect]
     Active Substance: PACLITAXEL
     Route: 042
  172. PACLITAXEL [Suspect]
     Active Substance: PACLITAXEL
     Route: 042
  173. PACLITAXEL [Suspect]
     Active Substance: PACLITAXEL
     Route: 042
  174. CYCLOPHOSPHAMIDE [Suspect]
     Active Substance: CYCLOPHOSPHAMIDE
     Indication: Breast cancer
     Route: 042
  175. CYCLOPHOSPHAMIDE [Suspect]
     Active Substance: CYCLOPHOSPHAMIDE
     Indication: Tardive dyskinesia
     Route: 042
  176. CYCLOPHOSPHAMIDE [Suspect]
     Active Substance: CYCLOPHOSPHAMIDE
     Indication: Breast cancer female
     Route: 042
  177. CYCLOPHOSPHAMIDE [Suspect]
     Active Substance: CYCLOPHOSPHAMIDE
     Route: 042
  178. CYCLOPHOSPHAMIDE [Suspect]
     Active Substance: CYCLOPHOSPHAMIDE
     Route: 042
  179. CYCLOPHOSPHAMIDE [Suspect]
     Active Substance: CYCLOPHOSPHAMIDE
     Route: 042
  180. CYCLOPHOSPHAMIDE [Suspect]
     Active Substance: CYCLOPHOSPHAMIDE
     Route: 042
  181. CYCLOPHOSPHAMIDE [Suspect]
     Active Substance: CYCLOPHOSPHAMIDE
     Route: 042
     Dates: start: 20161201, end: 20170126
  182. CYCLOPHOSPHAMIDE [Suspect]
     Active Substance: CYCLOPHOSPHAMIDE
     Route: 042
  183. CYCLOPHOSPHAMIDE [Suspect]
     Active Substance: CYCLOPHOSPHAMIDE
     Route: 042
  184. CYCLOPHOSPHAMIDE [Suspect]
     Active Substance: CYCLOPHOSPHAMIDE
     Route: 042
  185. CYCLOPHOSPHAMIDE [Suspect]
     Active Substance: CYCLOPHOSPHAMIDE
     Route: 042
  186. CYCLOPHOSPHAMIDE [Suspect]
     Active Substance: CYCLOPHOSPHAMIDE
     Route: 042
  187. CYCLOPHOSPHAMIDE [Suspect]
     Active Substance: CYCLOPHOSPHAMIDE
     Route: 042
  188. CYCLOPHOSPHAMIDE [Suspect]
     Active Substance: CYCLOPHOSPHAMIDE
     Route: 042
  189. CYCLOPHOSPHAMIDE [Suspect]
     Active Substance: CYCLOPHOSPHAMIDE
     Route: 042
  190. CYCLOPHOSPHAMIDE [Suspect]
     Active Substance: CYCLOPHOSPHAMIDE
     Route: 042
  191. CYCLOPHOSPHAMIDE [Suspect]
     Active Substance: CYCLOPHOSPHAMIDE
     Route: 042
  192. CYCLOPHOSPHAMIDE [Suspect]
     Active Substance: CYCLOPHOSPHAMIDE
     Route: 042
  193. CYCLOPHOSPHAMIDE [Suspect]
     Active Substance: CYCLOPHOSPHAMIDE
     Route: 042
  194. CYCLOPHOSPHAMIDE [Suspect]
     Active Substance: CYCLOPHOSPHAMIDE
     Dosage: 1360 MILLIGRAM, 1 EVERY 2 WEEKS (DOSAGE FORM:NOT SPECIFIED)
     Route: 042
  195. CYCLOPHOSPHAMIDE [Suspect]
     Active Substance: CYCLOPHOSPHAMIDE
     Dosage: 1360 MILLIGRAM, 1 EVERY 2 WEEKS (DOSAGE FORM POWDER FOR SOLUTION FOR INJECTION/INFUSION)
     Route: 042
  196. CYCLOPHOSPHAMIDE [Suspect]
     Active Substance: CYCLOPHOSPHAMIDE
     Dosage: 1360 MILLIGRAM, 1 EVERY 2 WEEKS (DOSAGE FORM POWDER FOR SOLUTION FOR INJECTION/INFUSION)
     Route: 042
  197. CYCLOPHOSPHAMIDE [Suspect]
     Active Substance: CYCLOPHOSPHAMIDE
     Route: 042
  198. CYCLOPHOSPHAMIDE [Suspect]
     Active Substance: CYCLOPHOSPHAMIDE
     Route: 042
  199. CYCLOPHOSPHAMIDE [Suspect]
     Active Substance: CYCLOPHOSPHAMIDE
     Dosage: 1360 MILLIGRAM, 1 EVERY 2 WEEKS (DOSAGE FORM POWDER FOR SOLUTION FOR INJECTION/INFUSION)
     Route: 065
  200. CYCLOPHOSPHAMIDE [Suspect]
     Active Substance: CYCLOPHOSPHAMIDE
     Route: 065
  201. CYCLOPHOSPHAMIDE [Suspect]
     Active Substance: CYCLOPHOSPHAMIDE
     Route: 042
  202. CYCLOPHOSPHAMIDE [Suspect]
     Active Substance: CYCLOPHOSPHAMIDE
     Route: 042
  203. CYCLOPHOSPHAMIDE [Suspect]
     Active Substance: CYCLOPHOSPHAMIDE
     Route: 042
  204. CYCLOPHOSPHAMIDE [Suspect]
     Active Substance: CYCLOPHOSPHAMIDE
     Route: 042
  205. CYCLOPHOSPHAMIDE [Suspect]
     Active Substance: CYCLOPHOSPHAMIDE
     Indication: Breast cancer
     Route: 042
  206. CYCLOPHOSPHAMIDE [Suspect]
     Active Substance: CYCLOPHOSPHAMIDE
     Indication: Breast cancer female
     Route: 042
  207. CYCLOPHOSPHAMIDE [Suspect]
     Active Substance: CYCLOPHOSPHAMIDE
     Dosage: 1360 MILLIGRAM, 1 EVERY 2 WEEKS(QOW),INTRAVENOUS(NOT OTHERWISE SPECIFIED)
     Route: 042
  208. CYCLOPHOSPHAMIDE [Suspect]
     Active Substance: CYCLOPHOSPHAMIDE
     Indication: Breast cancer
     Route: 042
  209. CYCLOPHOSPHAMIDE [Suspect]
     Active Substance: CYCLOPHOSPHAMIDE
     Indication: Tardive dyskinesia
  210. RANITIDINE HYDROCHLORIDE [Suspect]
     Active Substance: RANITIDINE HYDROCHLORIDE
     Indication: Tardive dyskinesia
     Dosage: 150 MILLIGRAM ,2 EVERY 1 DAY (BID)
     Route: 048
  211. RANITIDINE HYDROCHLORIDE [Suspect]
     Active Substance: RANITIDINE HYDROCHLORIDE
     Route: 048
     Dates: start: 20170112
  212. RANITIDINE HYDROCHLORIDE [Suspect]
     Active Substance: RANITIDINE HYDROCHLORIDE
     Dosage: 2 EVERY 1 DAY
     Route: 048
  213. RANITIDINE HYDROCHLORIDE [Suspect]
     Active Substance: RANITIDINE HYDROCHLORIDE
     Dosage: 150 MILLIGRAM, 1 EVERY 12 HOURS
     Route: 048
  214. RANITIDINE HYDROCHLORIDE [Suspect]
     Active Substance: RANITIDINE HYDROCHLORIDE
     Dosage: 2 EVERY 1 DAY
     Route: 048
  215. RANITIDINE HYDROCHLORIDE [Suspect]
     Active Substance: RANITIDINE HYDROCHLORIDE
     Dosage: 2 EVERY 1 DAY
     Route: 048
  216. RANITIDINE HYDROCHLORIDE [Suspect]
     Active Substance: RANITIDINE HYDROCHLORIDE
     Dosage: 150 MG 2 EVERY 1 DAY; 150 MG 2X/DAY
     Route: 048
  217. RANITIDINE HYDROCHLORIDE [Suspect]
     Active Substance: RANITIDINE HYDROCHLORIDE
     Dosage: 2 EVERY 1 DAY
     Route: 048
  218. RANITIDINE HYDROCHLORIDE [Suspect]
     Active Substance: RANITIDINE HYDROCHLORIDE
     Dosage: 2 EVERY 1 DAY
     Route: 048
  219. RANITIDINE HYDROCHLORIDE [Suspect]
     Active Substance: RANITIDINE HYDROCHLORIDE
     Route: 048
  220. RANITIDINE HYDROCHLORIDE [Suspect]
     Active Substance: RANITIDINE HYDROCHLORIDE
     Route: 048
  221. RANITIDINE HYDROCHLORIDE [Suspect]
     Active Substance: RANITIDINE HYDROCHLORIDE
     Route: 048
  222. RANITIDINE HYDROCHLORIDE [Suspect]
     Active Substance: RANITIDINE HYDROCHLORIDE
     Dosage: 150 MILLIGRAM, 1 EVERY 2 WEEKS
     Route: 048
  223. RANITIDINE HYDROCHLORIDE [Suspect]
     Active Substance: RANITIDINE HYDROCHLORIDE
     Dosage: 150 MG 2 EVERY 1 DAY; 150 MG 2X/DAY
     Route: 048
  224. RANITIDINE HYDROCHLORIDE [Suspect]
     Active Substance: RANITIDINE HYDROCHLORIDE
     Dosage: 2 EVERY 1 DAY
     Route: 048
  225. RANITIDINE HYDROCHLORIDE [Suspect]
     Active Substance: RANITIDINE HYDROCHLORIDE
     Indication: Tardive dyskinesia
     Route: 048
  226. RANITIDINE HYDROCHLORIDE [Suspect]
     Active Substance: RANITIDINE HYDROCHLORIDE
     Indication: Product used for unknown indication
     Route: 048
  227. RANITIDINE HYDROCHLORIDE [Suspect]
     Active Substance: RANITIDINE HYDROCHLORIDE
     Route: 048
  228. RANITIDINE HYDROCHLORIDE [Suspect]
     Active Substance: RANITIDINE HYDROCHLORIDE
     Dosage: 300 MILLIGRAM, QD (1 EVERY 1 DAY)
     Route: 048
  229. RANITIDINE HYDROCHLORIDE [Suspect]
     Active Substance: RANITIDINE HYDROCHLORIDE
     Route: 048
  230. RANITIDINE HYDROCHLORIDE [Suspect]
     Active Substance: RANITIDINE HYDROCHLORIDE
     Route: 048
  231. TRASTUZUMAB [Suspect]
     Active Substance: TRASTUZUMAB
     Indication: Tardive dyskinesia
     Route: 065
  232. TRASTUZUMAB [Suspect]
     Active Substance: TRASTUZUMAB
     Indication: Product used for unknown indication
     Route: 065
  233. TRASTUZUMAB [Suspect]
     Active Substance: TRASTUZUMAB
     Route: 048
  234. TRASTUZUMAB [Suspect]
     Active Substance: TRASTUZUMAB
     Route: 065
  235. TRASTUZUMAB [Suspect]
     Active Substance: TRASTUZUMAB
     Route: 065
  236. TRASTUZUMAB [Suspect]
     Active Substance: TRASTUZUMAB
     Route: 065
     Dates: start: 20170330
  237. TRASTUZUMAB [Suspect]
     Active Substance: TRASTUZUMAB
     Route: 065
  238. TRASTUZUMAB [Suspect]
     Active Substance: TRASTUZUMAB
     Route: 065
  239. TRASTUZUMAB [Suspect]
     Active Substance: TRASTUZUMAB
     Route: 065
  240. TRASTUZUMAB [Suspect]
     Active Substance: TRASTUZUMAB
     Route: 065
  241. TRASTUZUMAB [Suspect]
     Active Substance: TRASTUZUMAB
     Dosage: 866 MILLIGRAM, 1 EVER 1 DAY
     Route: 065
     Dates: start: 20170330
  242. TRASTUZUMAB [Suspect]
     Active Substance: TRASTUZUMAB
     Dosage: 866 MILLIGRAM, 1 EVER 1 DAY
     Route: 065
     Dates: start: 20170330
  243. TRASTUZUMAB [Suspect]
     Active Substance: TRASTUZUMAB
     Route: 065
  244. TRASTUZUMAB [Suspect]
     Active Substance: TRASTUZUMAB
     Dosage: 626 MILLIGRAM, 1 EVERY 1 DAY
     Route: 065
  245. TRASTUZUMAB [Suspect]
     Active Substance: TRASTUZUMAB
     Dosage: 866 MILLIGRAM,1 EVERY 1 DAYS(QD)
     Route: 065
  246. TRASTUZUMAB [Suspect]
     Active Substance: TRASTUZUMAB
     Route: 050
  247. TRASTUZUMAB [Suspect]
     Active Substance: TRASTUZUMAB
     Dosage: 866 MILLIGRAM, 1 EVER 1 DAY
     Route: 065
  248. TRASTUZUMAB [Suspect]
     Active Substance: TRASTUZUMAB
     Dosage: 626 MILLIGRAM, 1 EVERY 1 DAY
     Route: 065
  249. TYLENOL WITH CODEINE [Suspect]
     Active Substance: ACETAMINOPHEN\CODEINE PHOSPHATE
     Indication: Tardive dyskinesia
     Dosage: 30 MG EVERY 4 HOURS
     Route: 048
  250. TYLENOL WITH CODEINE [Suspect]
     Active Substance: ACETAMINOPHEN\CODEINE PHOSPHATE
     Dosage: UNK; DOSAGE FORM NOT SPECIFIED; 1 EVERY 4 HOURS
     Route: 065
  251. TYLENOL WITH CODEINE [Suspect]
     Active Substance: ACETAMINOPHEN\CODEINE PHOSPHATE
     Dosage: UNK; DOSAGE FORM NOT SPECIFIED; 1 EVERY 4 HOURS
     Route: 065
  252. TYLENOL WITH CODEINE [Suspect]
     Active Substance: ACETAMINOPHEN\CODEINE PHOSPHATE
     Dosage: UNK; DOSAGE FORM NOT SPECIFIED; 1 EVERY 4 HOURS
     Route: 065
  253. TYLENOL WITH CODEINE [Suspect]
     Active Substance: ACETAMINOPHEN\CODEINE PHOSPHATE
     Dosage: UNK; DOSAGE FORM NOT SPECIFIED; 1 EVERY 4 HOURS
     Route: 065
  254. TYLENOL WITH CODEINE [Suspect]
     Active Substance: ACETAMINOPHEN\CODEINE PHOSPHATE
     Dosage: UNK; DOSAGE FORM NOT SPECIFIED; 1 EVERY 4 HOURS
     Route: 065
  255. TYLENOL WITH CODEINE [Suspect]
     Active Substance: ACETAMINOPHEN\CODEINE PHOSPHATE
     Route: 065
  256. ZOFRAN [Suspect]
     Active Substance: ONDANSETRON HYDROCHLORIDE
     Indication: Supportive care
     Route: 048
  257. ZOFRAN [Suspect]
     Active Substance: ONDANSETRON HYDROCHLORIDE
     Dosage: 8.0 MILLIGRAM, 1 EVERY 1 DAYS(QD)
     Route: 048
  258. ZOFRAN [Suspect]
     Active Substance: ONDANSETRON HYDROCHLORIDE
     Route: 048
  259. ZOFRAN [Suspect]
     Active Substance: ONDANSETRON HYDROCHLORIDE
     Dosage: 8.0 MILLIGRAM,1 EVERY 1 DAYS(QD)
     Route: 048
  260. ONDANSETRON HYDROCHLORIDE [Suspect]
     Active Substance: ONDANSETRON HYDROCHLORIDE
     Indication: Supportive care
     Dosage: 8.0 MILLIGRAM, FREQUENCY 1 EVERY (1) DAY
     Route: 048
  261. ONDANSETRON HYDROCHLORIDE [Suspect]
     Active Substance: ONDANSETRON HYDROCHLORIDE
     Route: 048
  262. ONDANSETRON HYDROCHLORIDE [Suspect]
     Active Substance: ONDANSETRON HYDROCHLORIDE
     Dosage: 8 MILLIGRAM, QD
     Route: 048
  263. ONDANSETRON HYDROCHLORIDE [Suspect]
     Active Substance: ONDANSETRON HYDROCHLORIDE
     Route: 048
  264. ONDANSETRON HYDROCHLORIDE [Suspect]
     Active Substance: ONDANSETRON HYDROCHLORIDE
     Route: 048
  265. ONDANSETRON HYDROCHLORIDE [Suspect]
     Active Substance: ONDANSETRON HYDROCHLORIDE
     Route: 048
  266. ONDANSETRON HYDROCHLORIDE [Suspect]
     Active Substance: ONDANSETRON HYDROCHLORIDE
     Route: 048
  267. ONDANSETRON HYDROCHLORIDE [Suspect]
     Active Substance: ONDANSETRON HYDROCHLORIDE
     Route: 048
  268. ONDANSETRON HYDROCHLORIDE [Suspect]
     Active Substance: ONDANSETRON HYDROCHLORIDE
     Route: 048
  269. ONDANSETRON HYDROCHLORIDE [Suspect]
     Active Substance: ONDANSETRON HYDROCHLORIDE
     Route: 065
  270. ONDANSETRON HYDROCHLORIDE [Suspect]
     Active Substance: ONDANSETRON HYDROCHLORIDE
     Route: 048
  271. ONDANSETRON HYDROCHLORIDE [Suspect]
     Active Substance: ONDANSETRON HYDROCHLORIDE
     Route: 048
  272. ONDANSETRON HYDROCHLORIDE [Suspect]
     Active Substance: ONDANSETRON HYDROCHLORIDE
     Route: 048
  273. ONDANSETRON HYDROCHLORIDE [Suspect]
     Active Substance: ONDANSETRON HYDROCHLORIDE
     Route: 048
  274. ONDANSETRON HYDROCHLORIDE [Suspect]
     Active Substance: ONDANSETRON HYDROCHLORIDE
     Route: 048
  275. ONDANSETRON HYDROCHLORIDE [Suspect]
     Active Substance: ONDANSETRON HYDROCHLORIDE
     Route: 048
  276. ONDANSETRON HYDROCHLORIDE [Suspect]
     Active Substance: ONDANSETRON HYDROCHLORIDE
     Route: 048
  277. ONDANSETRON HYDROCHLORIDE [Suspect]
     Active Substance: ONDANSETRON HYDROCHLORIDE
     Route: 048
  278. ONDANSETRON HYDROCHLORIDE [Suspect]
     Active Substance: ONDANSETRON HYDROCHLORIDE
     Dosage: 8 MILLIGRAM, 1 EVERY 1 DAY (DOSAGE FORM: NOT SPECIFIED)
     Route: 048
  279. ONDANSETRON HYDROCHLORIDE [Suspect]
     Active Substance: ONDANSETRON HYDROCHLORIDE
     Route: 048
  280. ONDANSETRON HYDROCHLORIDE [Suspect]
     Active Substance: ONDANSETRON HYDROCHLORIDE
     Route: 065
  281. NEUPOGEN [Suspect]
     Active Substance: FILGRASTIM
     Indication: Supportive care
     Dosage: 480 MICROGRAM, 1 EVERY 1 DAY (QD)
     Route: 065
  282. NEUPOGEN [Suspect]
     Active Substance: FILGRASTIM
     Indication: Product used for unknown indication
     Dosage: 480 MICROGRAM; 1 EVERY 1 DAY(S) (QD)
     Route: 048
  283. NEUPOGEN [Suspect]
     Active Substance: FILGRASTIM
     Dosage: UNK, 1 EVERY 1 DAYS (QD)
     Route: 065
  284. NEUPOGEN [Suspect]
     Active Substance: FILGRASTIM
     Dosage: 125 MILLIGRAM; 1 EVERY 1 DAY(S) (QD)
     Route: 048
  285. NEUPOGEN [Suspect]
     Active Substance: FILGRASTIM
     Dosage: UNK, 1 EVERY 1 DAYS (QD)
     Route: 065
  286. NEUPOGEN [Suspect]
     Active Substance: FILGRASTIM
     Dosage: UNK, 1 EVERY 1 DAYS (QD)
     Route: 065
  287. NEUPOGEN [Suspect]
     Active Substance: FILGRASTIM
     Dosage: 480 MICROGRAM, 1 EVERY 1 DAYS
     Route: 065
  288. NEUPOGEN [Suspect]
     Active Substance: FILGRASTIM
     Dosage: 480 MICROGRAM, 1 EVERY 1 DAYS
     Route: 065
  289. NEUPOGEN [Suspect]
     Active Substance: FILGRASTIM
     Dosage: 480 MICROGRAM, 1 EVERY 1 DAYS
     Route: 065
  290. NEUPOGEN [Suspect]
     Active Substance: FILGRASTIM
     Dosage: 480 MILLIGRAM, QD
     Route: 048
  291. NEUPOGEN [Suspect]
     Active Substance: FILGRASTIM
     Dosage: 480 MILLIGRAM, QD
     Route: 048
  292. NEUPOGEN [Suspect]
     Active Substance: FILGRASTIM
     Dosage: 480 MILLIGRAM, QD
     Route: 048
  293. NEUPOGEN [Suspect]
     Active Substance: FILGRASTIM
     Dosage: 480 MILLIGRAM, QD
     Route: 048
  294. NEUPOGEN [Suspect]
     Active Substance: FILGRASTIM
     Dosage: 480 MILLIGRAM, QD
     Route: 048
  295. NEUPOGEN [Suspect]
     Active Substance: FILGRASTIM
     Route: 065
  296. NEUPOGEN [Suspect]
     Active Substance: FILGRASTIM
     Route: 065
  297. NEUPOGEN [Suspect]
     Active Substance: FILGRASTIM
     Indication: Supportive care
     Route: 065
  298. NEUPOGEN [Suspect]
     Active Substance: FILGRASTIM
     Route: 065
  299. NEUPOGEN [Suspect]
     Active Substance: FILGRASTIM
     Route: 048
  300. NEUPOGEN [Suspect]
     Active Substance: FILGRASTIM
     Route: 042
  301. NEUPOGEN [Suspect]
     Active Substance: FILGRASTIM
     Route: 048
  302. NEULASTA [Suspect]
     Active Substance: PEGFILGRASTIM
     Indication: Supportive care
     Route: 058
  303. NEULASTA [Suspect]
     Active Substance: PEGFILGRASTIM
     Indication: Product used for unknown indication
     Route: 065
  304. NEULASTA [Suspect]
     Active Substance: PEGFILGRASTIM
     Route: 065
  305. NEULASTA [Suspect]
     Active Substance: PEGFILGRASTIM
     Route: 065
  306. NEULASTA [Suspect]
     Active Substance: PEGFILGRASTIM
     Route: 058
  307. NEULASTA [Suspect]
     Active Substance: PEGFILGRASTIM
     Dosage: 6 MILLIGRAM, 1 EVERY 1 DAYS (QD)
     Route: 058
  308. NEULASTA [Suspect]
     Active Substance: PEGFILGRASTIM
     Route: 058
  309. NEULASTA [Suspect]
     Active Substance: PEGFILGRASTIM
     Dosage: 6 MILLIGRAM, 1 EVERY 1 DAYS
     Route: 058
  310. NEULASTA [Suspect]
     Active Substance: PEGFILGRASTIM
     Route: 058
  311. NEULASTA [Suspect]
     Active Substance: PEGFILGRASTIM
     Dosage: 6 MILLIGRAM, 1 EVERY 1 DAYS (QD)
     Route: 058
  312. NEULASTA [Suspect]
     Active Substance: PEGFILGRASTIM
     Dosage: 6 MILLIGRAM, 1 EVERY 1 DAYS (QD)
     Route: 058
  313. NEULASTA [Suspect]
     Active Substance: PEGFILGRASTIM
     Dosage: 6 MILLIGRAM, 1 EVERY 1 DAYS (QD)
     Route: 058
  314. NEULASTA [Suspect]
     Active Substance: PEGFILGRASTIM
     Dosage: 6 MILLIGRAM, 1 EVERY 1 DAYS (QD)
     Route: 058
  315. NEULASTA [Suspect]
     Active Substance: PEGFILGRASTIM
     Dosage: 6 MILLIGRAM, 1 EVERY 1 DAYS (QD)
     Route: 058
  316. NEULASTA [Suspect]
     Active Substance: PEGFILGRASTIM
     Indication: Supportive care
     Route: 058
  317. NEULASTA [Suspect]
     Active Substance: PEGFILGRASTIM
     Route: 058
  318. NEULASTA [Suspect]
     Active Substance: PEGFILGRASTIM
     Route: 058
  319. NEULASTA [Suspect]
     Active Substance: PEGFILGRASTIM
     Route: 058
  320. ACETAMINOPHEN\CODEINE PHOSPHATE [Suspect]
     Active Substance: ACETAMINOPHEN\CODEINE PHOSPHATE
     Indication: Tardive dyskinesia
     Dosage: 30 MILLIGRAM, 1 EVERY 1 DAY
     Route: 048
  321. ACETAMINOPHEN\CODEINE PHOSPHATE [Suspect]
     Active Substance: ACETAMINOPHEN\CODEINE PHOSPHATE
     Indication: Product used for unknown indication
     Route: 048
  322. ACETAMINOPHEN\CODEINE PHOSPHATE [Suspect]
     Active Substance: ACETAMINOPHEN\CODEINE PHOSPHATE
     Dosage: 30 MILLIGRAM, 1 EVERY 1 DAYS
     Route: 048
  323. ACETAMINOPHEN\CODEINE PHOSPHATE [Suspect]
     Active Substance: ACETAMINOPHEN\CODEINE PHOSPHATE
     Dosage: 30 MILLIGRAM, 1 EVERY 4 HOUR
     Route: 048
  324. ACETAMINOPHEN\CODEINE PHOSPHATE [Suspect]
     Active Substance: ACETAMINOPHEN\CODEINE PHOSPHATE
     Dosage: 30 MILLIGRAM, 1 EVERY 4 HOURS
     Route: 048
  325. ACETAMINOPHEN\CODEINE PHOSPHATE [Suspect]
     Active Substance: ACETAMINOPHEN\CODEINE PHOSPHATE
     Dosage: 30 MILLIGRAM, 1 EVERY 4 HOURS
     Route: 048
  326. ACETAMINOPHEN\CODEINE PHOSPHATE [Suspect]
     Active Substance: ACETAMINOPHEN\CODEINE PHOSPHATE
     Dosage: 30 MILLIGRAM, 1 EVERY 1 DAYS; ALSO REPORTED AS ELIX, USP 100 MG-8MG/5ML
     Route: 048
  327. ACETAMINOPHEN\CODEINE PHOSPHATE [Suspect]
     Active Substance: ACETAMINOPHEN\CODEINE PHOSPHATE
     Route: 048
  328. ACETAMINOPHEN\CODEINE PHOSPHATE [Suspect]
     Active Substance: ACETAMINOPHEN\CODEINE PHOSPHATE
     Route: 065
  329. ACETAMINOPHEN\CODEINE PHOSPHATE [Suspect]
     Active Substance: ACETAMINOPHEN\CODEINE PHOSPHATE
     Route: 065
  330. ACETAMINOPHEN\CODEINE PHOSPHATE [Suspect]
     Active Substance: ACETAMINOPHEN\CODEINE PHOSPHATE
     Route: 065
  331. ACETAMINOPHEN\CODEINE PHOSPHATE [Suspect]
     Active Substance: ACETAMINOPHEN\CODEINE PHOSPHATE
     Route: 065
  332. ACETAMINOPHEN\CODEINE PHOSPHATE [Suspect]
     Active Substance: ACETAMINOPHEN\CODEINE PHOSPHATE
     Indication: Tardive dyskinesia
     Dosage: 30 MILLIGRAM,1 EVERY 1 DAYS( Q4H); STRENGTH: 8 MG/5 ML
     Route: 065
  333. ACETAMINOPHEN\CODEINE PHOSPHATE [Suspect]
     Active Substance: ACETAMINOPHEN\CODEINE PHOSPHATE
     Indication: Tardive dyskinesia
     Route: 065
  334. CYCLOPHOSPHAMIDE [Suspect]
     Active Substance: CYCLOPHOSPHAMIDE
     Indication: Tardive dyskinesia
     Route: 042
  335. CYCLOPHOSPHAMIDE [Suspect]
     Active Substance: CYCLOPHOSPHAMIDE
     Indication: Breast cancer female
     Route: 042
  336. CYCLOPHOSPHAMIDE [Suspect]
     Active Substance: CYCLOPHOSPHAMIDE
     Indication: Supportive care
     Route: 042
  337. CYCLOPHOSPHAMIDE [Suspect]
     Active Substance: CYCLOPHOSPHAMIDE
     Route: 065
  338. CYCLOPHOSPHAMIDE [Suspect]
     Active Substance: CYCLOPHOSPHAMIDE
     Route: 042
  339. CYCLOPHOSPHAMIDE [Suspect]
     Active Substance: CYCLOPHOSPHAMIDE
     Route: 042
  340. CYCLOPHOSPHAMIDE [Suspect]
     Active Substance: CYCLOPHOSPHAMIDE
     Route: 065
  341. DEXAMETHASONE [Suspect]
     Active Substance: DEXAMETHASONE
     Indication: Supportive care
     Route: 048
  342. DEXAMETHASONE [Suspect]
     Active Substance: DEXAMETHASONE
     Route: 048
  343. DEXAMETHASONE [Suspect]
     Active Substance: DEXAMETHASONE
     Route: 048
  344. DEXAMETHASONE [Suspect]
     Active Substance: DEXAMETHASONE
     Route: 048
  345. DEXAMETHASONE [Suspect]
     Active Substance: DEXAMETHASONE
     Route: 048
  346. DEXAMETHASONE [Suspect]
     Active Substance: DEXAMETHASONE
     Dosage: 20.0 MILLIGRAM; 1 EVERY 1 DAY(S) (QD) DOSAGE FORM: NOT SPECIFIED/ 20MG 1X/DAYDAILY DOSE : 20 MILLIGR
     Route: 048
     Dates: start: 20170329, end: 20170330
  347. DEXAMETHASONE [Suspect]
     Active Substance: DEXAMETHASONE
     Dosage: 20.0 MILLIGRAM; 1 EVERY 1 DAY(S) (QD)
     Route: 048
     Dates: start: 20170329, end: 20170330
  348. DEXAMETHASONE [Suspect]
     Active Substance: DEXAMETHASONE
     Dosage: 20.0 MILLIGRAM; 1 EVERY 1 DAY(S) (QD)
     Route: 048
     Dates: start: 20170329, end: 20170330
  349. DEXAMETHASONE [Suspect]
     Active Substance: DEXAMETHASONE
     Dosage: 20.0 MILLIGRAM; 1 EVERY 1 DAY(S) (QD)
     Route: 048
     Dates: start: 20170329, end: 20170330
  350. DEXAMETHASONE [Suspect]
     Active Substance: DEXAMETHASONE
     Dosage: 20.0 MILLIGRAM; 1 EVERY 1 DAY(S) (QD)
     Route: 048
     Dates: start: 20170329, end: 20170330
  351. DEXAMETHASONE [Suspect]
     Active Substance: DEXAMETHASONE
     Route: 048
  352. DEXAMETHASONE [Suspect]
     Active Substance: DEXAMETHASONE
     Dosage: 20.0 MILLIGRAM; 1 EVERY 1 DAY(S) (QD)
     Route: 065
     Dates: start: 20170329, end: 20170330
  353. DEXAMETHASONE [Suspect]
     Active Substance: DEXAMETHASONE
     Route: 065
  354. DEXAMETHASONE SODIUM PHOSPHATE [Suspect]
     Active Substance: DEXAMETHASONE SODIUM PHOSPHATE
     Indication: Supportive care
     Dosage: 20 MILLIGRAM, QD (1 EVERY 1 DAYS)
     Route: 048
  355. DOXORUBICIN [Suspect]
     Active Substance: DOXORUBICIN
     Indication: Product used for unknown indication
     Route: 042
  356. DOXORUBICIN [Suspect]
     Active Substance: DOXORUBICIN
     Indication: Breast cancer
     Route: 042
  357. DOXORUBICIN [Suspect]
     Active Substance: DOXORUBICIN
     Route: 042
  358. DOXORUBICIN [Suspect]
     Active Substance: DOXORUBICIN
     Route: 042
  359. DOXORUBICIN [Suspect]
     Active Substance: DOXORUBICIN
     Route: 042
  360. DOXORUBICIN [Suspect]
     Active Substance: DOXORUBICIN
     Route: 042
  361. DOXORUBICIN [Suspect]
     Active Substance: DOXORUBICIN
     Route: 042
  362. DOXORUBICIN [Suspect]
     Active Substance: DOXORUBICIN
     Route: 042
  363. DOXORUBICIN [Suspect]
     Active Substance: DOXORUBICIN
     Route: 042
  364. DOXORUBICIN [Suspect]
     Active Substance: DOXORUBICIN
     Route: 042
  365. ENOXAPARIN [Suspect]
     Active Substance: ENOXAPARIN
     Indication: Tardive dyskinesia
     Route: 058
  366. ENOXAPARIN [Suspect]
     Active Substance: ENOXAPARIN
     Dosage: 150 MILLIGRAM, QD (1 EVERY 1 DAYS)
     Route: 058
  367. ENOXAPARIN [Suspect]
     Active Substance: ENOXAPARIN
     Indication: Tardive dyskinesia
     Dosage: 150 MILLIGRAM, QD (1 EVERY 1 DAYS)
     Route: 058
  368. ENOXAPARIN [Suspect]
     Active Substance: ENOXAPARIN
     Dosage: 150.0 MILLIGRAM; 1 EVERY 1 DAY(S) (QD)/ 150MG 1X/DAYDAILY DOSE : 150 MILLIGRAM
     Route: 058
     Dates: start: 20161222
  369. ENOXAPARIN [Suspect]
     Active Substance: ENOXAPARIN
     Dosage: 150.0 MILLIGRAM; 1 EVERY 1 DAY(S) (QD)/ 150MG 1X/DAYDAILY DOSE : 150 MILLIGRAM
     Route: 058
     Dates: start: 20161222
  370. ENOXAPARIN [Suspect]
     Active Substance: ENOXAPARIN
     Route: 058
  371. LEVOFLOXACIN [Suspect]
     Active Substance: LEVOFLOXACIN
     Indication: Tardive dyskinesia
     Route: 048
  372. LEVOFLOXACIN [Suspect]
     Active Substance: LEVOFLOXACIN
     Route: 048
  373. LEVOFLOXACIN [Suspect]
     Active Substance: LEVOFLOXACIN
     Dosage: 500 MILLIGRAM, QD (1 EVERY 1 DAY)
     Route: 048
  374. LEVOFLOXACIN [Suspect]
     Active Substance: LEVOFLOXACIN
     Route: 048
  375. LEVOFLOXACIN [Suspect]
     Active Substance: LEVOFLOXACIN
     Dosage: 500 MILLIGRAM, QD (1 EVERY 1 DAY)
     Route: 048
     Dates: start: 20170209
  376. LEVOFLOXACIN [Suspect]
     Active Substance: LEVOFLOXACIN
     Route: 048
  377. LEVOFLOXACIN [Suspect]
     Active Substance: LEVOFLOXACIN
     Dosage: 500 MILLIGRAM, QD (1 EVERY 1 DAY)
     Route: 048
     Dates: start: 20170209
  378. LEVOFLOXACIN [Suspect]
     Active Substance: LEVOFLOXACIN
     Dosage: 500 MILLIGRAM, QD (1 EVERY 1 DAY)
     Route: 048
     Dates: start: 20170209
  379. BETAMETHASONE [Suspect]
     Active Substance: BETAMETHASONE
     Indication: Tardive dyskinesia
     Route: 048
  380. BETAMETHASONE [Suspect]
     Active Substance: BETAMETHASONE
     Dosage: 2 DOSAGE FORM, QD
     Route: 048
  381. BETAMETHASONE [Suspect]
     Active Substance: BETAMETHASONE
     Dosage: UNK, Q12H
     Route: 048
  382. BETAMETHASONE [Suspect]
     Active Substance: BETAMETHASONE
     Route: 048
  383. BETAMETHASONE [Suspect]
     Active Substance: BETAMETHASONE
     Dosage: UNK, Q12H
     Route: 048
  384. BETAMETHASONE [Suspect]
     Active Substance: BETAMETHASONE
     Route: 048
  385. PEGFILGRASTIM [Suspect]
     Active Substance: PEGFILGRASTIM
     Indication: Supportive care
     Route: 058
  386. PEGFILGRASTIM [Suspect]
     Active Substance: PEGFILGRASTIM
     Indication: Product used for unknown indication
  387. RANITIDINE [Suspect]
     Active Substance: RANITIDINE
     Indication: Tardive dyskinesia
     Route: 048
  388. RANITIDINE [Suspect]
     Active Substance: RANITIDINE
     Indication: Product used for unknown indication
     Route: 048
  389. APREPITANT [Suspect]
     Active Substance: APREPITANT
     Indication: Supportive care
     Dosage: 125.0 MILLIGRAM; 1 EVERY 1 DAY(S) (QD)DAILY
     Route: 048
  390. APREPITANT [Suspect]
     Active Substance: APREPITANT
     Indication: Product used for unknown indication
     Dosage: 80 MILLIGRAM, QD (1 EVERY 1 DAYS)
     Route: 048
     Dates: start: 20170331, end: 20170401
  391. APREPITANT [Suspect]
     Active Substance: APREPITANT
     Dosage: UNK, EVERY DAY
     Route: 048
  392. APREPITANT [Suspect]
     Active Substance: APREPITANT
     Dosage: UNK, EVERY DAY
     Route: 048
  393. APREPITANT [Suspect]
     Active Substance: APREPITANT
     Dosage: UNK, EVERY DAY
     Route: 048
  394. APREPITANT [Suspect]
     Active Substance: APREPITANT
     Dosage: 125.0 MILLIGRAM; 1 EVERY 1 DAY(S) (QD)DAILY
     Route: 048
  395. APREPITANT [Suspect]
     Active Substance: APREPITANT
     Dosage: 125.0 MILLIGRAM; 1 EVERY 1 DAY(S) (QD)DAILY
     Route: 048
  396. APREPITANT [Suspect]
     Active Substance: APREPITANT
     Dosage: 125.0 MILLIGRAM; 1 EVERY 1 DAY(S) (QD)DAILY
     Route: 048
  397. APREPITANT [Suspect]
     Active Substance: APREPITANT
     Dosage: 125.0 MILLIGRAM; 1 EVERY 1 DAY(S) (QD)DAILY
     Route: 048
  398. APREPITANT [Suspect]
     Active Substance: APREPITANT
     Dosage: 80 MILLIGRAM, QD (1 EVERY 1 DAYS)
     Route: 048
     Dates: start: 20170331, end: 20170401
  399. APREPITANT [Suspect]
     Active Substance: APREPITANT
     Dosage: 80 MILLIGRAM, QD (1 EVERY 1 DAYS)
     Route: 048
     Dates: start: 20170331, end: 20170401
  400. APREPITANT [Suspect]
     Active Substance: APREPITANT
     Dosage: 80 MILLIGRAM, QD (1 EVERY 1 DAYS)
     Route: 048
     Dates: start: 20170331, end: 20170401
  401. APREPITANT [Suspect]
     Active Substance: APREPITANT
     Dosage: 80 MILLIGRAM, QD (1 EVERY 1 DAYS)
     Route: 048
     Dates: start: 20170331, end: 20170401
  402. APREPITANT [Suspect]
     Active Substance: APREPITANT
     Dosage: 80 MILLIGRAM, QD (1 EVERY 1 DAYS)
     Route: 048
     Dates: start: 20170331, end: 20170401
  403. APREPITANT [Suspect]
     Active Substance: APREPITANT
     Dosage: 80 MILLIGRAM, QD (1 EVERY 1 DAYS)
     Route: 048
     Dates: start: 20170331, end: 20170401
  404. APREPITANT [Suspect]
     Active Substance: APREPITANT
     Dosage: 80 MILLIGRAM, QD (1 EVERY 1 DAYS)
     Route: 048
     Dates: start: 20170331, end: 20170401
  405. APREPITANT [Suspect]
     Active Substance: APREPITANT
     Dosage: 80 MILLIGRAM, QD (1 EVERY 1 DAYS)
     Route: 048
     Dates: start: 20170331, end: 20170401
  406. APREPITANT [Suspect]
     Active Substance: APREPITANT
     Dosage: 80 MILLIGRAM, QD (1 EVERY 1 DAYS)
     Route: 048
     Dates: start: 20170331, end: 20170401
  407. APREPITANT [Suspect]
     Active Substance: APREPITANT
     Dosage: UNK, EVERY DAY
     Route: 048
  408. APREPITANT [Suspect]
     Active Substance: APREPITANT
     Dosage: 125.0 MILLIGRAM; 1 EVERY 1 DAY(S) (QD)DAILY
     Route: 048
  409. APREPITANT [Suspect]
     Active Substance: APREPITANT
     Dosage: 80 MILLIGRAM, QD (1 EVERY 1 DAYS)
     Route: 048
     Dates: start: 20170331, end: 20170401
  410. APREPITANT [Suspect]
     Active Substance: APREPITANT
     Route: 048
  411. APREPITANT [Suspect]
     Active Substance: APREPITANT
     Dosage: UNK, EVERY DAY
     Route: 048
  412. APREPITANT [Suspect]
     Active Substance: APREPITANT
     Dosage: UNK, EVERY DAY
     Route: 048
  413. APREPITANT [Suspect]
     Active Substance: APREPITANT
     Dosage: UNK, EVERY DAY
     Route: 048
  414. APREPITANT [Suspect]
     Active Substance: APREPITANT
     Dosage: UNK, EVERY DAY
     Route: 048
  415. FILGRASTIM [Suspect]
     Active Substance: FILGRASTIM
     Indication: Supportive care
     Route: 048
  416. FILGRASTIM [Suspect]
     Active Substance: FILGRASTIM
     Dosage: 480 MICROGRAM, QD (1 EVERY 1 DAY)
     Route: 065
  417. FILGRASTIM [Suspect]
     Active Substance: FILGRASTIM
     Dosage: 480 MILLIGRAM, QD (1 EVERY 1 DAY)
     Route: 065
  418. ONDANSETRON HYDROCHLORIDE [Suspect]
     Active Substance: ONDANSETRON HYDROCHLORIDE
     Indication: Supportive care
     Route: 048
  419. ONDANSETRON HYDROCHLORIDE [Suspect]
     Active Substance: ONDANSETRON HYDROCHLORIDE
     Route: 048
  420. ONDANSETRON HYDROCHLORIDE [Suspect]
     Active Substance: ONDANSETRON HYDROCHLORIDE
     Route: 048
  421. ONDANSETRON HYDROCHLORIDE [Suspect]
     Active Substance: ONDANSETRON HYDROCHLORIDE
     Route: 065
  422. ONDANSETRON HYDROCHLORIDE [Suspect]
     Active Substance: ONDANSETRON HYDROCHLORIDE
     Route: 048
  423. ONDANSETRON HYDROCHLORIDE [Suspect]
     Active Substance: ONDANSETRON HYDROCHLORIDE
     Route: 048
  424. ONDANSETRON HYDROCHLORIDE [Suspect]
     Active Substance: ONDANSETRON HYDROCHLORIDE
     Route: 048
  425. ONDANSETRON HYDROCHLORIDE [Suspect]
     Active Substance: ONDANSETRON HYDROCHLORIDE
     Route: 065
  426. ONDANSETRON HYDROCHLORIDE [Suspect]
     Active Substance: ONDANSETRON HYDROCHLORIDE
     Route: 048
  427. ZOFRAN [Suspect]
     Active Substance: ONDANSETRON HYDROCHLORIDE
     Indication: Supportive care
     Dosage: 8 MILLIGRAM; FORM: NOT SPECIFIED
     Route: 048
  428. ZOFRAN [Suspect]
     Active Substance: ONDANSETRON HYDROCHLORIDE
     Dosage: 8 MILLIGRAM; FORM: ORODISPERSIBLE FILM
     Route: 048
  429. ZOFRAN [Suspect]
     Active Substance: ONDANSETRON HYDROCHLORIDE
     Dosage: 8 MILLIGRAM; FORM: ORODISPERSIBLE FILM
     Route: 048
  430. ZOFRAN [Suspect]
     Active Substance: ONDANSETRON HYDROCHLORIDE
     Route: 048
  431. ZOFRAN [Suspect]
     Active Substance: ONDANSETRON HYDROCHLORIDE
     Route: 048
  432. ZOFRAN [Suspect]
     Active Substance: ONDANSETRON HYDROCHLORIDE
     Dosage: 8 MILLIGRAM; FORM: ORODISPERSIBLE FILM
     Route: 048
  433. ZOFRAN [Suspect]
     Active Substance: ONDANSETRON HYDROCHLORIDE
     Dosage: 8 MILLIGRAM; FORM: ORODISPERSIBLE FILM
     Route: 048
  434. ZOFRAN [Suspect]
     Active Substance: ONDANSETRON HYDROCHLORIDE
     Dosage: 8 MILLIGRAM, QD; FORM: ORODISPERSIBLE FILMDAILY DOSE : 8 MILLIGRAM
     Route: 048
  435. ZOFRAN [Suspect]
     Active Substance: ONDANSETRON HYDROCHLORIDE
     Route: 048
  436. ZOFRAN [Suspect]
     Active Substance: ONDANSETRON HYDROCHLORIDE
     Dosage: 8 MILLIGRAM; FORM: ORODISPERSIBLE FILM
     Route: 048
  437. ZOFRAN [Suspect]
     Active Substance: ONDANSETRON HYDROCHLORIDE
     Dosage: 8 MILLIGRAM, QD; FORM: ORODISPERSIBLE FILMDAILY DOSE : 8 MILLIGRAM
     Route: 048
  438. ZOFRAN [Suspect]
     Active Substance: ONDANSETRON HYDROCHLORIDE
     Dosage: 8 MILLIGRAM; FORM: ORODISPERSIBLE FILM
     Route: 048
  439. ZOFRAN [Suspect]
     Active Substance: ONDANSETRON HYDROCHLORIDE
     Dosage: 8 MILLIGRAM; FORM: ORODISPERSIBLE FILM
     Route: 048
  440. ZOFRAN [Suspect]
     Active Substance: ONDANSETRON HYDROCHLORIDE
     Route: 048
  441. ZOFRAN [Suspect]
     Active Substance: ONDANSETRON HYDROCHLORIDE
     Route: 048

REACTIONS (13)
  - Atelectasis [Recovered/Resolved]
  - Computerised tomogram thorax [Recovered/Resolved]
  - Computerised tomogram thorax abnormal [Recovered/Resolved]
  - Cough [Recovered/Resolved]
  - Dyspnoea [Recovered/Resolved]
  - Fatigue [Recovered/Resolved]
  - Gastrointestinal disorder [Recovered/Resolved]
  - Hypoxia [Recovered/Resolved]
  - Nausea [Recovered/Resolved]
  - Pyrexia [Recovered/Resolved]
  - Rash [Recovered/Resolved]
  - Lung opacity [Recovered/Resolved]
  - Off label use [Unknown]

NARRATIVE: CASE EVENT DATE: 20170209
